FAERS Safety Report 5300595-X (Version None)
Quarter: 2007Q2

REPORT INFORMATION
  Report Type: 
  Country: None (occurrence: None)
  Receive Date: 20070418
  Receipt Date: 20070410
  Transmission Date: 20071010
  Serious: Yes (Other)
  Sender: FDA-Public Use
  Company Number: GB-GLAXOSMITHKLINE-B0466617A

PATIENT
  Age: 54 Year
  Sex: Male
  Weight: 113 kg

DRUGS (12)
  1. RANITIDINE [Suspect]
     Indication: PREMEDICATION
     Route: 048
  2. REMIFENTANIL [Suspect]
     Route: 042
     Dates: start: 20070222
  3. DEXAMETHASONE 0.5MG TAB [Suspect]
     Dosage: 4MG PER DAY
     Route: 042
     Dates: start: 20070222
  4. KETOPROFEN [Suspect]
     Indication: PREMEDICATION
     Dosage: 100MG PER DAY
     Route: 048
     Dates: start: 20070222, end: 20070222
  5. MIDAZOLAM HCL [Suspect]
     Dosage: 1MG PER DAY
     Route: 042
     Dates: start: 20070222
  6. OXYGEN [Suspect]
     Dates: start: 20070222
  7. PROPOFOL [Suspect]
     Route: 042
     Dates: start: 20070222
  8. TRAMADOL HCL [Suspect]
     Indication: PERIOPERATIVE ANALGESIA
     Dosage: 100MG PER DAY
     Route: 042
     Dates: start: 20070222, end: 20070222
  9. CHLORPHENIRAMINE MALEATE [Concomitant]
     Route: 048
     Dates: start: 20070210, end: 20070212
  10. FELODIPINE [Concomitant]
     Route: 048
     Dates: start: 20070216
  11. IBUPROFEN [Concomitant]
     Dosage: 800MG AS REQUIRED
     Route: 048
  12. PARACETAMOL [Concomitant]
     Dosage: 1G AS REQUIRED
     Route: 048

REACTIONS (5)
  - DIARRHOEA [None]
  - HYPOTENSION [None]
  - PO2 DECREASED [None]
  - RESTLESSNESS [None]
  - VOMITING [None]
